FAERS Safety Report 17463437 (Version 2)
Quarter: 2020Q1

REPORT INFORMATION
  Report Type: Spontaneous
  Country: JP (occurrence: JP)
  Receive Date: 20200226
  Receipt Date: 20200310
  Transmission Date: 20200409
  Serious: Yes (Death, Other)
  Sender: FDA-Public Use
  Company Number: JP-ASTRAZENECA-2019SF52820

PATIENT
  Age: 60 Year
  Sex: Male
  Weight: 65 kg

DRUGS (15)
  1. IMFINZI [Suspect]
     Active Substance: DURVALUMAB
     Indication: NON-SMALL CELL LUNG CANCER
     Route: 041
     Dates: start: 20190805, end: 20190819
  2. PREDNISOLONE. [Suspect]
     Active Substance: PREDNISOLONE
     Indication: PULMONARY TOXICITY
     Route: 048
     Dates: start: 20190903, end: 20190925
  3. LOXOPROFEN NA [Concomitant]
     Active Substance: LOXOPROFEN SODIUM
     Indication: CHEST PAIN
     Route: 048
     Dates: start: 20190711, end: 20191011
  4. PREDNISOLONE. [Suspect]
     Active Substance: PREDNISOLONE
     Indication: PULMONARY TOXICITY
     Dosage: DOSE REDUCED
     Route: 048
     Dates: start: 20190926, end: 20190929
  5. CARBOPLATIN. [Suspect]
     Active Substance: CARBOPLATIN
     Indication: NON-SMALL CELL LUNG CANCER
     Route: 065
     Dates: start: 20190611, end: 20190709
  6. ATORVASTATIN [Concomitant]
     Active Substance: ATORVASTATIN
     Indication: HYPERLIPIDAEMIA
     Route: 048
     Dates: start: 20190530, end: 20191011
  7. ALLOID G [Concomitant]
     Active Substance: SODIUM ALGINATE
     Indication: OESOPHAGITIS
     Route: 048
     Dates: start: 20190703, end: 20190908
  8. REBAMIPIDE [Concomitant]
     Active Substance: REBAMIPIDE
     Indication: GASTRITIS PROPHYLAXIS
     Route: 048
     Dates: start: 20190711, end: 20191011
  9. PACLITAXEL. [Suspect]
     Active Substance: PACLITAXEL
     Indication: NON-SMALL CELL LUNG CANCER
     Route: 065
     Dates: start: 20190611, end: 20190709
  10. PREDNISOLONE. [Suspect]
     Active Substance: PREDNISOLONE
     Indication: PULMONARY TOXICITY
     Dosage: DISCONTINUED
     Route: 048
     Dates: start: 20191003, end: 20191011
  11. NIFEDIPINE CR [Concomitant]
     Active Substance: NIFEDIPINE
     Indication: HYPERTENSION
     Route: 048
     Dates: start: 20190530, end: 20191011
  12. METHYLPREDNISOLONE. [Suspect]
     Active Substance: METHYLPREDNISOLONE
     Indication: PULMONARY TOXICITY
     Route: 041
     Dates: start: 20190902, end: 20190902
  13. METHYLPREDNISOLONE. [Suspect]
     Active Substance: METHYLPREDNISOLONE
     Indication: PULMONARY TOXICITY
     Route: 041
     Dates: start: 20190930, end: 20191002
  14. ECARD [Concomitant]
     Active Substance: CANDESARTAN CILEXETIL\HYDROCHLOROTHIAZIDE
     Indication: HYPERTENSION
     Route: 048
     Dates: start: 20190530, end: 20191011
  15. DOXAZOSIN [Concomitant]
     Active Substance: DOXAZOSIN MESYLATE
     Indication: HYPERTENSION
     Route: 048
     Dates: start: 20190530, end: 20191011

REACTIONS (5)
  - Pleural effusion [Unknown]
  - Bronchiectasis [Unknown]
  - Pneumothorax [Fatal]
  - Radiation pneumonitis [Fatal]
  - Interstitial lung disease [Fatal]

NARRATIVE: CASE EVENT DATE: 20190831
